FAERS Safety Report 25220290 (Version 1)
Quarter: 2025Q2

REPORT INFORMATION
  Report Type: Spontaneous
  Country: CN (occurrence: CN)
  Receive Date: 20250421
  Receipt Date: 20250421
  Transmission Date: 20250716
  Serious: Yes (Life-Threatening, Other)
  Sender: PFIZER
  Company Number: CN-PFIZER INC-PV202500045489

PATIENT
  Sex: Female

DRUGS (5)
  1. AZITHROMYCIN [Suspect]
     Active Substance: AZITHROMYCIN
     Indication: Legionella infection
     Dosage: 10 MG/KG, DAILY
     Dates: start: 20230405, end: 20230416
  2. MEROPENEM [Concomitant]
     Active Substance: MEROPENEM
     Indication: Anti-infective therapy
     Dosage: 40 MG/KG, 3X/DAY, INJECTION
     Dates: start: 20230329, end: 20230425
  3. FLUCONAZOLE [Concomitant]
     Active Substance: FLUCONAZOLE
     Indication: Fungal infection
     Dosage: 11 MG/KG, 1X/DAY
     Dates: start: 20230401, end: 202304
  4. DIGOXIN [Concomitant]
     Active Substance: DIGOXIN
     Indication: Symptomatic treatment
     Dosage: 0.015 MG, 2X/DAY, GASTRIC TUBE INJECTION
     Route: 048
     Dates: start: 20230405
  5. COMPOUND GLYCYRRHIZIN [DL-METHIONINE;GLYCINE;GLYCYRRHIZIC ACID, AMMONI [Concomitant]
     Dosage: 25 MG, TABLETS
     Route: 048
     Dates: start: 20230409

REACTIONS (2)
  - Drug resistance [Recovered/Resolved]
  - Off label use [Unknown]
